FAERS Safety Report 9291091 (Version 1)
Quarter: 2013Q2

REPORT INFORMATION
  Report Type: Report from Study
  Country: JP (occurrence: JP)
  Receive Date: 20130515
  Receipt Date: 20130515
  Transmission Date: 20140414
  Serious: Yes (Other)
  Sender: FDA-Public Use
  Company Number: JP-PFIZER INC-2013145172

PATIENT
  Age: 70 Year
  Sex: Female

DRUGS (2)
  1. GEMCITABINE HYDROCHLORIDE [Suspect]
     Indication: PANCREATIC CARCINOMA
     Dosage: 4 DOSES
  2. TS-1 [Suspect]
     Indication: PANCREATIC CARCINOMA
     Dosage: UNK

REACTIONS (2)
  - Alveolitis allergic [Recovering/Resolving]
  - Pulmonary toxicity [None]
